FAERS Safety Report 7230604-2 (Version None)
Quarter: 2011Q1

REPORT INFORMATION
  Report Type: 
  Country: None (occurrence: None)
  Receive Date: 20110118
  Receipt Date: 20110111
  Transmission Date: 20110831
  Serious: Yes (Other)
  Sender: FDA-Public Use
  Company Number: PHHY2010FR87441

PATIENT
  Sex: Male
  Weight: 62 kg

DRUGS (2)
  1. LAMICTAL [Concomitant]
     Dosage: 100 UNK, TWICE PER DAY
  2. TRILEPTAL [Suspect]
     Indication: EPILEPSY
     Dosage: 300 MG, BID
     Dates: start: 20061007

REACTIONS (6)
  - ULNA FRACTURE [None]
  - VITAMIN D DECREASED [None]
  - HIGH DENSITY LIPOPROTEIN DECREASED [None]
  - GREENSTICK FRACTURE [None]
  - BLOOD IRON INCREASED [None]
  - SPORTS INJURY [None]
